FAERS Safety Report 23687114 (Version 1)
Quarter: 2024Q1

REPORT INFORMATION
  Report Type: Spontaneous
  Country: US (occurrence: None)
  Receive Date: 20240329
  Receipt Date: 20240329
  Transmission Date: 20240409
  Serious: No
  Sender: FDA-Public Use
  Company Number: 2024A067745

PATIENT
  Sex: Male

DRUGS (1)
  1. BREZTRI [Suspect]
     Active Substance: BUDESONIDE\FORMOTEROL\GLYCOPYRROLATE
     Route: 055

REACTIONS (7)
  - Candida infection [Unknown]
  - Oropharyngeal pain [Unknown]
  - Product dose omission issue [Unknown]
  - Product after taste [Unknown]
  - Product use issue [Unknown]
  - Device use issue [Unknown]
  - Product storage error [Unknown]
